FAERS Safety Report 5401382-4 (Version None)
Quarter: 2007Q3

REPORT INFORMATION
  Report Type: 
  Country: None (occurrence: None)
  Receive Date: 20070731
  Receipt Date: 20070730
  Transmission Date: 20080115
  Serious: Yes (Other)
  Sender: FDA-Public Use
  Company Number: B0481403A

PATIENT
  Age: 47 Year
  Sex: Male

DRUGS (4)
  1. ARTIST [Suspect]
     Route: 048
     Dates: start: 20070601
  2. SUNRYTHM [Suspect]
     Indication: DRUG USE FOR UNKNOWN INDICATION
     Route: 048
  3. DILTIAZEM HCL [Concomitant]
  4. ASPIRIN [Concomitant]

REACTIONS (8)
  - BACK PAIN [None]
  - BLOOD PRESSURE DECREASED [None]
  - BRADYCARDIA [None]
  - CARDIAC FAILURE [None]
  - DIZZINESS [None]
  - HEART RATE DECREASED [None]
  - HYPOTENSION [None]
  - ILL-DEFINED DISORDER [None]
